FAERS Safety Report 21376442 (Version 5)
Quarter: 2023Q1

REPORT INFORMATION
  Report Type: Spontaneous
  Country: US (occurrence: US)
  Receive Date: 20220926
  Receipt Date: 20230127
  Transmission Date: 20230418
  Serious: Yes (Other)
  Sender: FDA-Public Use
  Company Number: US-GLAXOSMITHKLINE-US2022AMR134792

PATIENT

DRUGS (2)
  1. ZEJULA [Suspect]
     Active Substance: NIRAPARIB
     Indication: Ovarian cancer
     Dosage: 100 MG, QD
     Route: 048
     Dates: start: 202202
  2. ZEJULA [Suspect]
     Active Substance: NIRAPARIB
     Dosage: 100 MG, QD
     Dates: end: 20230103

REACTIONS (7)
  - Malignant neoplasm progression [Unknown]
  - Pain in extremity [Not Recovered/Not Resolved]
  - Decreased activity [Unknown]
  - Sciatica [Unknown]
  - Carbohydrate antigen 125 increased [Unknown]
  - Tumour marker increased [Unknown]
  - Off label use [Unknown]
